FAERS Safety Report 6033276-8 (Version None)
Quarter: 2009Q1

REPORT INFORMATION
  Report Type: 
  Country: None (occurrence: None)
  Receive Date: 20090109
  Receipt Date: 20081216
  Transmission Date: 20090719
  Serious: Yes (Life-Threatening, Hospitalization, Other)
  Sender: FDA-Public Use
  Company Number: US-BAXTER-2008BH013931

PATIENT
  Age: 57 Year
  Sex: Female
  Weight: 69 kg

DRUGS (43)
  1. FENTANYL CITRATE [Suspect]
     Indication: SEDATION
     Route: 042
     Dates: start: 20071218, end: 20071218
  2. FENTANYL CITRATE [Suspect]
     Indication: PAIN
     Route: 042
     Dates: start: 20071218, end: 20071218
  3. FENTANYL CITRATE [Suspect]
     Route: 042
     Dates: start: 20071218, end: 20071218
  4. FENTANYL CITRATE [Suspect]
     Route: 042
     Dates: start: 20071218, end: 20071218
  5. FENTANYL CITRATE [Suspect]
     Route: 042
     Dates: start: 20071218, end: 20071218
  6. FENTANYL CITRATE [Suspect]
     Route: 042
     Dates: start: 20071218, end: 20071218
  7. FENTANYL CITRATE [Suspect]
     Route: 042
     Dates: start: 20071218, end: 20071218
  8. FENTANYL CITRATE [Suspect]
     Route: 042
     Dates: start: 20071218, end: 20071218
  9. MIDAZOLAM HYDROCHLORIDE [Suspect]
     Indication: SEDATIVE THERAPY
     Route: 042
     Dates: start: 20071218, end: 20071218
  10. MIDAZOLAM HYDROCHLORIDE [Suspect]
     Route: 042
     Dates: start: 20071218, end: 20071218
  11. MIDAZOLAM HYDROCHLORIDE [Suspect]
     Route: 042
     Dates: start: 20071218, end: 20071218
  12. MIDAZOLAM HYDROCHLORIDE [Suspect]
     Route: 042
     Dates: start: 20071218, end: 20071218
  13. CANGRELOR INJECTION [Suspect]
     Indication: PERCUTANEOUS CORONARY INTERVENTION
     Route: 040
     Dates: start: 20071218, end: 20071218
  14. CANGRELOR INJECTION [Suspect]
     Route: 040
     Dates: start: 20071218, end: 20071218
  15. CLOPIDOGREL [Suspect]
     Indication: PERCUTANEOUS CORONARY INTERVENTION
     Route: 048
     Dates: start: 20071218, end: 20071218
  16. ABCIXIMAB [Concomitant]
     Indication: DRUG USE FOR UNKNOWN INDICATION
     Route: 065
     Dates: start: 20071218, end: 20071218
  17. HEPARIN [Concomitant]
     Indication: DRUG USE FOR UNKNOWN INDICATION
     Route: 065
  18. ENOXAPARIN SODIUM [Concomitant]
     Indication: DRUG USE FOR UNKNOWN INDICATION
     Route: 065
     Dates: start: 20071217, end: 20071217
  19. HEPARIN [Concomitant]
     Indication: DRUG USE FOR UNKNOWN INDICATION
     Route: 065
     Dates: start: 20071218, end: 20071218
  20. NITROGLYCERIN [Concomitant]
     Indication: DRUG USE FOR UNKNOWN INDICATION
     Route: 065
     Dates: start: 20071217
  21. ACETYLSALICYLIC ACID [Concomitant]
     Indication: DRUG USE FOR UNKNOWN INDICATION
     Route: 065
     Dates: start: 20071218, end: 20071218
  22. XYLOCAINE [Concomitant]
     Indication: DRUG USE FOR UNKNOWN INDICATION
     Route: 065
     Dates: start: 20071218, end: 20071218
  23. ACETAMINOPHEN AND HYDROCODONE BITARTRATE [Concomitant]
     Indication: DRUG USE FOR UNKNOWN INDICATION
     Route: 065
     Dates: start: 20071217
  24. CALCIUM CARBONATE [Concomitant]
     Indication: DRUG USE FOR UNKNOWN INDICATION
     Route: 065
     Dates: start: 20071218
  25. CAPTOPRIL [Concomitant]
     Indication: DRUG USE FOR UNKNOWN INDICATION
     Route: 065
     Dates: start: 20071218
  26. CLONAZEPAM [Concomitant]
     Indication: DRUG USE FOR UNKNOWN INDICATION
     Route: 065
     Dates: start: 20071217
  27. EPTIFIBATIDE [Concomitant]
     Indication: DRUG USE FOR UNKNOWN INDICATION
     Route: 065
  28. ESOMPRAZOLE [Concomitant]
     Indication: DRUG USE FOR UNKNOWN INDICATION
     Route: 065
     Dates: start: 20071218
  29. FLUOXETINE [Concomitant]
     Indication: DRUG USE FOR UNKNOWN INDICATION
     Route: 065
     Dates: start: 20071218
  30. LEVOTHYROXINE SODIUM [Concomitant]
     Indication: DRUG USE FOR UNKNOWN INDICATION
     Route: 065
     Dates: start: 20071218
  31. METOPROLOL TARTRATE [Concomitant]
     Indication: DRUG USE FOR UNKNOWN INDICATION
     Route: 065
     Dates: start: 20071217
  32. NICOTINE [Concomitant]
     Indication: DRUG USE FOR UNKNOWN INDICATION
     Route: 065
     Dates: start: 20071218
  33. ONDANESTRON [Concomitant]
     Indication: DRUG USE FOR UNKNOWN INDICATION
     Route: 065
     Dates: start: 20071218
  34. SIMVASTATIN [Concomitant]
     Indication: DRUG USE FOR UNKNOWN INDICATION
     Route: 065
  35. OXYGEN [Concomitant]
     Indication: DRUG USE FOR UNKNOWN INDICATION
     Route: 065
     Dates: start: 20071217
  36. SODIUM CHLORIDE [Concomitant]
     Indication: DRUG USE FOR UNKNOWN INDICATION
     Route: 065
     Dates: start: 20071218
  37. VISIPAQUE [Concomitant]
     Indication: DRUG USE FOR UNKNOWN INDICATION
     Route: 065
  38. OMNIPAQUE 140 [Concomitant]
     Indication: DRUG USE FOR UNKNOWN INDICATION
     Route: 065
  39. LASIX [Concomitant]
     Indication: DRUG USE FOR UNKNOWN INDICATION
     Route: 065
     Dates: start: 20071218, end: 20071218
  40. PROPOFOL [Concomitant]
     Indication: DRUG USE FOR UNKNOWN INDICATION
     Route: 065
     Dates: start: 20071218, end: 20071218
  41. BIVALIRUDIN [Concomitant]
     Indication: DRUG USE FOR UNKNOWN INDICATION
     Route: 065
     Dates: start: 20071218, end: 20071218
  42. FENTANYL-100 [Concomitant]
     Indication: DRUG USE FOR UNKNOWN INDICATION
     Route: 065
  43. VERSED [Concomitant]
     Indication: DRUG USE FOR UNKNOWN INDICATION
     Route: 065

REACTIONS (9)
  - ANAEMIA [None]
  - BLOOD GLUCOSE INCREASED [None]
  - CATHETER SITE HAEMATOMA [None]
  - DEPRESSED LEVEL OF CONSCIOUSNESS [None]
  - HAEMORRHAGE [None]
  - HYPOTENSION [None]
  - ISCHAEMIA [None]
  - RESPIRATORY FAILURE [None]
  - SINUS TACHYCARDIA [None]
